FAERS Safety Report 23728617 (Version 2)
Quarter: 2024Q4

REPORT INFORMATION
  Report Type: Spontaneous
  Country: GR (occurrence: GR)
  Receive Date: 20240410
  Receipt Date: 20241219
  Transmission Date: 20250115
  Serious: Yes (Other)
  Sender: PFIZER
  Company Number: None

PATIENT
  Age: 43 Year
  Sex: Male
  Weight: 69 kg

DRUGS (1)
  1. VIBRAMYCIN [Suspect]
     Active Substance: DOXYCYCLINE
     Indication: Respiratory tract infection
     Dosage: 100 MG, 1X/DAY
     Route: 048
     Dates: start: 20240202, end: 20240202

REACTIONS (4)
  - Pruritus genital [Not Recovered/Not Resolved]
  - Lymphoedema [Not Recovered/Not Resolved]
  - Penile ulceration [Not Recovered/Not Resolved]
  - Dyspareunia [Unknown]

NARRATIVE: CASE EVENT DATE: 20240202
